FAERS Safety Report 4614955-3 (Version None)
Quarter: 2005Q1

REPORT INFORMATION
  Report Type: 
  Country: None (occurrence: None)
  Receive Date: 20050322
  Receipt Date: 20050222
  Transmission Date: 20050727
  Serious: Yes (Hospitalization)
  Sender: FDA-Public Use
  Company Number: AU-ROCHE-396154

PATIENT
  Age: 52 Year
  Sex: Female
  Weight: 70 kg

DRUGS (2)
  1. PEGASYS [Suspect]
     Route: 058
     Dates: start: 20040507, end: 20040927
  2. RIBAVIRIN [Concomitant]
     Route: 048
     Dates: start: 20040507, end: 20040927

REACTIONS (2)
  - LUNG DISORDER [None]
  - PULMONARY GRANULOMA [None]
